FAERS Safety Report 15634978 (Version 2)
Quarter: 2018Q4

REPORT INFORMATION
  Report Type: Spontaneous
  Country: IT (occurrence: IT)
  Receive Date: 20181119
  Receipt Date: 20181227
  Transmission Date: 20190205
  Serious: Yes (Life-Threatening, Hospitalization, Other)
  Sender: FDA-Public Use
  Company Number: IT-ALEXION PHARMACEUTICALS INC.-A201814842

PATIENT
  Sex: Male

DRUGS (1)
  1. SOLIRIS [Suspect]
     Active Substance: ECULIZUMAB
     Indication: PAROXYSMAL NOCTURNAL HAEMOGLOBINURIA
     Route: 065
     Dates: start: 20160527

REACTIONS (6)
  - Splenomegaly [Unknown]
  - Iron overload [Unknown]
  - Hepatomegaly [Unknown]
  - Cardiac valve disease [Unknown]
  - Aortic aneurysm rupture [Unknown]
  - Left atrial enlargement [Unknown]
